FAERS Safety Report 5471264-0 (Version None)
Quarter: 2007Q3

REPORT INFORMATION
  Report Type: 
  Country: None (occurrence: None)
  Receive Date: 20070820
  Receipt Date: 20070612
  Transmission Date: 20080115
  Serious: No
  Sender: FDA-Public Use
  Company Number: WAES 0706USA02132

PATIENT
  Age: 57 Year
  Sex: Male
  Weight: 117.9352 kg

DRUGS (8)
  1. JANUVIA [Suspect]
     Indication: TYPE 2 DIABETES MELLITUS
     Dosage: 100 MG/DAILY/PO
     Route: 048
     Dates: start: 20070609, end: 20070612
  2. AMBIEN [Concomitant]
  3. BENICAR [Concomitant]
  4. LEXAPRO [Concomitant]
  5. LUNESTA [Concomitant]
  6. TRICOR [Concomitant]
  7. VICODIN [Concomitant]
  8. METFORMIN HCL [Concomitant]

REACTIONS (2)
  - PETECHIAE [None]
  - RASH PRURITIC [None]
